FAERS Safety Report 4485048-3 (Version None)
Quarter: 2004Q3

REPORT INFORMATION
  Report Type: 
  Country: None (occurrence: None)
  Receive Date: 20040921
  Receipt Date: 20030925
  Transmission Date: 20050211
  Serious: Yes (Death, Hospitalization)
  Sender: FDA-Public Use
  Company Number: 2002-03-0106

PATIENT
  Age: 35 Year
  Sex: Female
  Weight: 80.8 kg

DRUGS (6)
  1. THALOMID [Suspect]
     Indication: GLIOBLASTOMA MULTIFORME
     Dosage: 300 MG, QHS, ORAL
     Route: 048
     Dates: start: 20020212, end: 20020311
  2. CYTOXAN [Suspect]
     Indication: GLIOBLASTOMA MULTIFORME
     Dosage: 100 MG, Q AM, ORAL
     Route: 048
     Dates: start: 20020212, end: 20020311
  3. DECADRON [Concomitant]
  4. DILANTIN [Concomitant]
  5. CELEXA [Concomitant]
  6. CELEBREX [Concomitant]

REACTIONS (6)
  - DEATH [None]
  - DISEASE PROGRESSION [None]
  - INFECTION [None]
  - NEUTROPHIL COUNT DECREASED [None]
  - PYREXIA [None]
  - WHITE BLOOD CELL COUNT DECREASED [None]
